FAERS Safety Report 12377099 (Version 1)
Quarter: 2016Q2

REPORT INFORMATION
  Report Type: Report from Study
  Country: US (occurrence: US)
  Receive Date: 20160517
  Receipt Date: 20160517
  Transmission Date: 20160815
  Serious: No
  Sender: FDA-Public Use
  Company Number: US-MALLINCKRODT-T201503960

PATIENT
  Age: 66 Year
  Sex: Female

DRUGS (5)
  1. REPOSITORY CORTICOTROPIN INJECTION [Suspect]
     Active Substance: CORTICOTROPIN
     Dosage: 80 UNITS TWICE PER WEEK
     Route: 058
     Dates: start: 2016
  2. METHOTREXATE [Concomitant]
     Active Substance: METHOTREXATE
  3. REPOSITORY CORTICOTROPIN INJECTION [Suspect]
     Active Substance: CORTICOTROPIN
     Indication: RHEUMATOID ARTHRITIS
     Dosage: 80 UNITS TWICE PER WEEK
     Route: 058
     Dates: start: 20150728, end: 2015
  4. REPOSITORY CORTICOTROPIN INJECTION [Suspect]
     Active Substance: CORTICOTROPIN
     Dosage: 40 UNITS TWICE PER WEEK
     Route: 058
     Dates: start: 2015, end: 2015
  5. REPOSITORY CORTICOTROPIN INJECTION [Suspect]
     Active Substance: CORTICOTROPIN
     Dosage: 40 UNITS EVERY OTHER DAY
     Route: 058
     Dates: start: 2015

REACTIONS (11)
  - Feeling hot [Recovering/Resolving]
  - Post-traumatic neck syndrome [Not Recovered/Not Resolved]
  - Gastroenteritis viral [Unknown]
  - Rotator cuff syndrome [Not Recovered/Not Resolved]
  - Weight decreased [Unknown]
  - Pruritus [Recovering/Resolving]
  - Road traffic accident [Unknown]
  - Injection site erythema [Not Recovered/Not Resolved]
  - Erythema [Recovering/Resolving]
  - Injection site mass [Not Recovered/Not Resolved]
  - Injection site bruising [Not Recovered/Not Resolved]

NARRATIVE: CASE EVENT DATE: 20150921
